FAERS Safety Report 4364346-8 (Version None)
Quarter: 2004Q2

REPORT INFORMATION
  Report Type: 
  Country: None (occurrence: None)
  Receive Date: 20040525
  Receipt Date: 20040226
  Transmission Date: 20050107
  Serious: No
  Sender: FDA-Public Use
  Company Number: US-BRISTOL-MYERS SQUIBB COMPANY-12518353

PATIENT
  Sex: Male

DRUGS (1)
  1. CYTOXAN [Suspect]
     Indication: CHRONIC MYELOID LEUKAEMIA
     Dosage: SECOND COURSE
     Route: 042
     Dates: start: 20040225, end: 20040225

REACTIONS (3)
  - EYE DISORDER [None]
  - ORAL DISCOMFORT [None]
  - RHINORRHOEA [None]
